FAERS Safety Report 17197240 (Version 1)
Quarter: 2019Q4

REPORT INFORMATION
  Report Type: Spontaneous
  Country: HU (occurrence: HU)
  Receive Date: 20191224
  Receipt Date: 20191224
  Transmission Date: 20200122
  Serious: Yes (Hospitalization)
  Sender: FDA-Public Use
  Company Number: HU-ASTRAZENECA-2019SF65013

PATIENT
  Age: 24353 Day
  Sex: Female
  Weight: 44 kg

DRUGS (1)
  1. IMFINZI [Suspect]
     Active Substance: DURVALUMAB
     Indication: LUNG ADENOCARCINOMA STAGE III
     Dosage: 10.0MG/KG UNKNOWN
     Route: 042

REACTIONS (3)
  - Cholelithiasis [Unknown]
  - Hepatomegaly [Unknown]
  - Cutaneous symptom [Recovered/Resolved]

NARRATIVE: CASE EVENT DATE: 20191010
